FAERS Safety Report 6067508-7 (Version None)
Quarter: 2009Q1

REPORT INFORMATION
  Report Type: 
  Country: None (occurrence: None)
  Receive Date: 20090205
  Receipt Date: 19990518
  Transmission Date: 20090719
  Serious: Yes (Hospitalization)
  Sender: FDA-Public Use
  Company Number: US-BRISTOL-MYERS SQUIBB COMPANY-14489165

PATIENT
  Age: 29 Year
  Sex: Female

DRUGS (10)
  1. ARIPIPRAZOLE [Suspect]
     Indication: SCHIZOPHRENIA
     Route: 048
     Dates: start: 19981020
  2. SERZONE [Concomitant]
     Dates: start: 19990322
  3. NEURONTIN [Concomitant]
     Dates: start: 19990111
  4. KLONOPIN [Concomitant]
     Dates: start: 19981113
  5. CHLORAL HYDRATE [Concomitant]
     Dosage: LIQUID.
     Dates: start: 19981120
  6. VOLMAX [Concomitant]
     Dates: start: 19971015
  7. PREVACID [Concomitant]
     Dates: start: 19980901
  8. PROPULSID [Concomitant]
     Dates: start: 19980901
  9. ALBUTEROL [Concomitant]
     Route: 055
     Dates: start: 19820103
  10. FLOVENT [Concomitant]
     Dates: start: 19820103

REACTIONS (2)
  - ABDOMINAL DISCOMFORT [None]
  - CHOLECYSTITIS CHRONIC [None]
